FAERS Safety Report 6340668-6 (Version None)
Quarter: 2009Q3

REPORT INFORMATION
  Report Type: 
  Country: None (occurrence: None)
  Receive Date: 20090904
  Receipt Date: 20090824
  Transmission Date: 20100115
  Serious: Yes (Hospitalization)
  Sender: FDA-Public Use
  Company Number: CH-WYE-H10734309

PATIENT
  Age: 86 Year
  Sex: Female

DRUGS (3)
  1. PANTOZOL [Suspect]
     Indication: GASTROOESOPHAGEAL REFLUX DISEASE
     Dosage: UNKNOWN
     Route: 048
  2. CALCIUM [Concomitant]
     Indication: NUTRITIONAL SUPPORT
     Dosage: UNKNOWN
  3. ALENDRONATE SODIUM [Suspect]
     Indication: OSTEOPOROSIS
     Dosage: UNKNOWN

REACTIONS (1)
  - FEMUR FRACTURE [None]
